FAERS Safety Report 4294472-3 (Version None)
Quarter: 2004Q1

REPORT INFORMATION
  Report Type: 
  Country: None (occurrence: None)
  Receive Date: 20040211
  Receipt Date: 20040127
  Transmission Date: 20041129
  Serious: Yes (Hospitalization)
  Sender: FDA-Public Use
  Company Number: GBS040114345

PATIENT
  Sex: Female

DRUGS (1)
  1. OLANZAPINE [Suspect]
     Dosage: 10 MG
     Dates: start: 20030101, end: 20040101

REACTIONS (4)
  - ALANINE AMINOTRANSFERASE INCREASED [None]
  - PCO2 DECREASED [None]
  - RESPIRATORY FAILURE [None]
  - WEIGHT INCREASED [None]
